FAERS Safety Report 9842923 (Version 4)
Quarter: 2014Q1

REPORT INFORMATION
  Report Type: Report from Study
  Country: DE (occurrence: DE)
  Receive Date: 20140124
  Receipt Date: 20140331
  Transmission Date: 20141002
  Serious: Yes (Hospitalization)
  Sender: FDA-Public Use
  Company Number: DE-CELGENEUS-062-21880-14012529

PATIENT
  Age: 65 Year
  Sex: Female
  Weight: 72 kg

DRUGS (8)
  1. REVLIMID [Suspect]
     Indication: PLASMA CELL MYELOMA
     Dosage: 25 MILLIGRAM
     Route: 048
     Dates: start: 201110, end: 201111
  2. REVLIMID [Suspect]
     Dosage: 10 MILLIGRAM
     Route: 048
     Dates: start: 201112, end: 201202
  3. REVLIMID [Suspect]
     Dosage: 15 MILLIGRAM
     Route: 048
     Dates: start: 201203, end: 20131205
  4. BORTEZOMIB [Suspect]
     Indication: PLASMA CELL MYELOMA
     Dosage: 1.3 MILLIGRAM/SQ. METER
     Route: 041
     Dates: start: 20110329, end: 20110603
  5. ACETYLSALICYLIC ACID [Concomitant]
     Indication: CEREBRAL ISCHAEMIA
     Dosage: 100 MILLIGRAM
     Route: 048
     Dates: start: 20131205
  6. ACETYLSALICYLIC ACID [Concomitant]
     Dosage: 100 MILLIGRAM
     Route: 048
  7. SIMVASTATIN [Concomitant]
     Indication: PRODUCT USED FOR UNKNOWN INDICATION
     Dosage: 20 MILLIGRAM
     Route: 065
  8. SIMVASTATIN [Concomitant]
     Dosage: 100 MILLIGRAM
     Route: 048

REACTIONS (2)
  - Central nervous system lesion [Not Recovered/Not Resolved]
  - Epilepsy [Unknown]
